FAERS Safety Report 5810835-6 (Version None)
Quarter: 2008Q3

REPORT INFORMATION
  Report Type: 
  Country: None (occurrence: None)
  Receive Date: 20080710
  Receipt Date: 20080625
  Transmission Date: 20090109
  Serious: Yes (Other)
  Sender: FDA-Public Use
  Company Number: 232508J08USA

PATIENT
  Age: 55 Year
  Sex: Female
  Weight: 73.9363 kg

DRUGS (2)
  1. REBIF [Suspect]
     Indication: MULTIPLE SCLEROSIS
     Dosage: 44 MCG, 2 IN 1 WEEKS, SUBCUTANEOUS
     Route: 058
     Dates: start: 20021212
  2. CELEBREX [Concomitant]

REACTIONS (9)
  - ARTHRALGIA [None]
  - CONDITION AGGRAVATED [None]
  - INJECTION SITE HAEMATOMA [None]
  - INJECTION SITE HYPERSENSITIVITY [None]
  - INJECTION SITE NECROSIS [None]
  - INJECTION SITE PAIN [None]
  - INJECTION SITE SCAB [None]
  - INJECTION SITE SCAR [None]
  - VARICOSE VEIN [None]
